FAERS Safety Report 7846469-1 (Version None)
Quarter: 2011Q4

REPORT INFORMATION
  Report Type: 
  Country: None (occurrence: None)
  Receive Date: 20111025
  Receipt Date: 20111025
  Transmission Date: 20120403
  Serious: Yes (Other)
  Sender: FDA-Public Use
  Company Number: None

PATIENT
  Age: 45 Year
  Sex: Female
  Weight: 78.017 kg

DRUGS (6)
  1. ADDERALL 5 [Concomitant]
     Indication: FATIGUE
     Dosage: 80 MG
     Dates: start: 20110401, end: 20111025
  2. ADDERALL 5 [Concomitant]
     Indication: MEMORY IMPAIRMENT
     Dosage: 80 MG
     Dates: start: 20110401, end: 20111025
  3. ADDERALL 5 [Concomitant]
     Indication: ATTENTION DEFICIT/HYPERACTIVITY DISORDER
     Dosage: 80 MG
     Dates: start: 20110401, end: 20111025
  4. ADDERALL 5 [Concomitant]
     Indication: VISION BLURRED
     Dosage: 80 MG
     Dates: start: 20110401, end: 20111025
  5. ADDERALL 5 [Concomitant]
     Indication: DISTURBANCE IN ATTENTION
     Dosage: 80 MG
     Dates: start: 20110401, end: 20111025
  6. MOBIC [Suspect]
     Indication: ARTHRALGIA
     Dosage: ONCE A DAY
     Dates: start: 20091210, end: 20101022

REACTIONS (56)
  - MYALGIA [None]
  - IMPAIRED WORK ABILITY [None]
  - LEARNING DISORDER [None]
  - ACNE [None]
  - PALPITATIONS [None]
  - HEART RATE INCREASED [None]
  - VAGINAL HAEMORRHAGE [None]
  - FATIGUE [None]
  - MENTAL STATUS CHANGES [None]
  - MENORRHAGIA [None]
  - LYMPHOMATOID PAPULOSIS [None]
  - DRY MOUTH [None]
  - MEMORY IMPAIRMENT [None]
  - HORMONE LEVEL ABNORMAL [None]
  - HYPERHIDROSIS [None]
  - DYSGEUSIA [None]
  - AMNESIA [None]
  - DRUG INEFFECTIVE [None]
  - LOSS OF CONSCIOUSNESS [None]
  - THERAPEUTIC RESPONSE UNEXPECTED [None]
  - TEMPERATURE INTOLERANCE [None]
  - DYSPNOEA [None]
  - VENTRICULAR EXTRASYSTOLES [None]
  - VISION BLURRED [None]
  - PRURITUS [None]
  - HYPOAESTHESIA [None]
  - CENTRAL NERVOUS SYSTEM LESION [None]
  - DIFFUSE LARGE B-CELL LYMPHOMA [None]
  - COGNITIVE DISORDER [None]
  - MALAISE [None]
  - PYREXIA [None]
  - ARTHROPATHY [None]
  - LOSS OF EMPLOYMENT [None]
  - ANAEMIA [None]
  - METRORRHAGIA [None]
  - IMPAIRED HEALING [None]
  - DIZZINESS [None]
  - PAROTID GLAND ENLARGEMENT [None]
  - PHARYNGITIS [None]
  - DYSPHONIA [None]
  - CONFUSIONAL STATE [None]
  - ROAD TRAFFIC ACCIDENT [None]
  - ACTIVITIES OF DAILY LIVING IMPAIRED [None]
  - WOUND INFECTION STAPHYLOCOCCAL [None]
  - HYPOTENSION [None]
  - MUSCULAR WEAKNESS [None]
  - IMPAIRED DRIVING ABILITY [None]
  - NASOPHARYNGITIS [None]
  - DRUG EFFECT DECREASED [None]
  - SCAR [None]
  - DRY SKIN [None]
  - BREAST MASS [None]
  - WEIGHT DECREASED [None]
  - SALIVARY GLAND ENLARGEMENT [None]
  - DISTURBANCE IN ATTENTION [None]
  - TINNITUS [None]
